FAERS Safety Report 23096395 (Version 5)
Quarter: 2023Q4

REPORT INFORMATION
  Report Type: Spontaneous
  Country: CO (occurrence: CO)
  Receive Date: 20231023
  Receipt Date: 20231227
  Transmission Date: 20240110
  Serious: No
  Sender: FDA-Public Use
  Company Number: CO-PFIZER INC-PV202300163849

PATIENT
  Age: 12 Year
  Sex: Female

DRUGS (1)
  1. GENOTROPIN [Suspect]
     Active Substance: SOMATROPIN
     Dosage: 1 MG, DAILY (AT NIGHT)
     Route: 058

REACTIONS (4)
  - Drug administered in wrong device [Unknown]
  - Device use error [Unknown]
  - Dizziness [Recovered/Resolved]
  - Urticaria [Recovered/Resolved]
